FAERS Safety Report 25842702 (Version 2)
Quarter: 2025Q4

REPORT INFORMATION
  Report Type: Spontaneous
  Country: US (occurrence: US)
  Receive Date: 20250924
  Receipt Date: 20251107
  Transmission Date: 20260117
  Serious: No
  Sender: MYLAN
  Company Number: US-MYLANLABS-2025M1077591

PATIENT
  Age: 68 Year
  Sex: Female
  Weight: 77 kg

DRUGS (1)
  1. WIXELA INHUB [Suspect]
     Active Substance: FLUTICASONE PROPIONATE\SALMETEROL XINAFOATE
     Indication: Product used for unknown indication
     Dosage: 100 PER 50 MICROGRAM, BID (TWICE PER DAY)
     Dates: start: 20250808, end: 20250910

REACTIONS (4)
  - Cough [Unknown]
  - Incorrect dose administered by device [Unknown]
  - Device delivery system issue [Unknown]
  - Device issue [Unknown]

NARRATIVE: CASE EVENT DATE: 20250910
